FAERS Safety Report 25629405 (Version 3)
Quarter: 2025Q4

REPORT INFORMATION
  Report Type: Spontaneous
  Country: GB (occurrence: GB)
  Receive Date: 20250731
  Receipt Date: 20251009
  Transmission Date: 20260118
  Serious: Yes (Hospitalization)
  Sender: PFIZER
  Company Number: GB-PFIZER INC-PV202500092058

PATIENT
  Age: 76 Year
  Sex: Female

DRUGS (1)
  1. XELJANZ [Suspect]
     Active Substance: TOFACITINIB CITRATE
     Indication: Rheumatoid arthritis
     Dosage: 5 MG, 1X/DAY
     Route: 048
     Dates: end: 20250727

REACTIONS (5)
  - Joint injury [Recovering/Resolving]
  - Cellulitis [Recovering/Resolving]
  - Pain in extremity [Unknown]
  - Off label use [Unknown]
  - Rash [Recovered/Resolved]
